FAERS Safety Report 16635353 (Version 2)
Quarter: 2020Q1

REPORT INFORMATION
  Report Type: Spontaneous
  Country: SE (occurrence: SE)
  Receive Date: 20190726
  Receipt Date: 20200115
  Transmission Date: 20200409
  Serious: Yes (Other)
  Sender: FDA-Public Use
  Company Number: SE-SUN PHARMACEUTICAL INDUSTRIES LTD-2019R1-214969

PATIENT
  Age: 32 Year
  Sex: Female

DRUGS (3)
  1. SERTRALINE [Suspect]
     Active Substance: SERTRALINE HYDROCHLORIDE
     Dosage: 25 MILLIGRAM, DAILY, TABLETTER
     Route: 048
     Dates: start: 20180801, end: 20180808
  2. SERTRALINE [Suspect]
     Active Substance: SERTRALINE HYDROCHLORIDE
     Dosage: 50 MILLIGRAM, DAILY
     Route: 048
     Dates: start: 20180809, end: 20180827
  3. SERTRALINE [Suspect]
     Active Substance: SERTRALINE HYDROCHLORIDE
     Indication: PRODUCT USED FOR UNKNOWN INDICATION
     Dosage: 75 MILLIGRAM, DAILY, TABLETTER
     Route: 048
     Dates: start: 20180828

REACTIONS (1)
  - Colitis microscopic [Recovered/Resolved with Sequelae]

NARRATIVE: CASE EVENT DATE: 20181001
